FAERS Safety Report 15381099 (Version 1)
Quarter: 2018Q3

REPORT INFORMATION
  Report Type: Spontaneous
  Country: US (occurrence: US)
  Receive Date: 20180913
  Receipt Date: 20180913
  Transmission Date: 20181010
  Serious: No
  Sender: FDA-Public Use
  Company Number: US-ASTELLAS-2018US001234

PATIENT
  Sex: Male

DRUGS (6)
  1. XTANDI [Suspect]
     Active Substance: ENZALUTAMIDE
     Route: 048
  2. ZANTAC [Concomitant]
     Active Substance: RANITIDINE HYDROCHLORIDE
     Indication: PEPTIC ULCER
  3. XTANDI [Suspect]
     Active Substance: ENZALUTAMIDE
     Route: 048
  4. XTANDI [Suspect]
     Active Substance: ENZALUTAMIDE
     Route: 048
  5. XTANDI [Suspect]
     Active Substance: ENZALUTAMIDE
     Indication: HORMONE-REFRACTORY PROSTATE CANCER
     Route: 048
     Dates: start: 20170915
  6. XTANDI [Suspect]
     Active Substance: ENZALUTAMIDE
     Route: 048

REACTIONS (14)
  - Fatigue [Unknown]
  - Macular degeneration [Unknown]
  - Insomnia [Unknown]
  - Underdose [Unknown]
  - General physical health deterioration [Unknown]
  - Myalgia [Unknown]
  - Abnormal dreams [Unknown]
  - Vision blurred [Unknown]
  - Nightmare [Unknown]
  - Cataract [Unknown]
  - Arthralgia [Unknown]
  - Malaise [Unknown]
  - Dizziness [Unknown]
  - Back pain [Unknown]
